FAERS Safety Report 9237486 (Version 8)
Quarter: 2015Q1

REPORT INFORMATION
  Report Type: Spontaneous
  Country: US (occurrence: US)
  Receive Date: 20130417
  Receipt Date: 20150123
  Transmission Date: 20150721
  Serious: Yes (Death, Life-Threatening, Hospitalization, Other)
  Sender: FDA-Public Use
  Company Number: US-MERCK-1304USA008228

PATIENT
  Sex: Female
  Weight: 99.77 kg

DRUGS (2)
  1. JANUVIA [Suspect]
     Active Substance: SITAGLIPTIN PHOSPHATE
     Indication: TYPE 2 DIABETES MELLITUS
     Dosage: 100 MG, QD
     Route: 048
     Dates: start: 201101, end: 20110310
  2. BYETTA [Suspect]
     Active Substance: EXENATIDE
     Indication: TYPE 2 DIABETES MELLITUS
     Dosage: 5 MICROGRAM, QD
     Dates: start: 20080118, end: 20100825

REACTIONS (30)
  - Metastases to lymph nodes [Unknown]
  - Somnolence [Unknown]
  - Hypersensitivity [Unknown]
  - Deep vein thrombosis [Unknown]
  - Abdominal pain [Unknown]
  - Febrile neutropenia [Unknown]
  - Urinary tract infection [Unknown]
  - Type 1 diabetes mellitus [Unknown]
  - Pancreatitis [Unknown]
  - Open angle glaucoma [Unknown]
  - Joint surgery [Unknown]
  - Hepatic lesion [Unknown]
  - Vision blurred [Unknown]
  - Arteriosclerosis [Unknown]
  - Chronic gastritis [Not Recovered/Not Resolved]
  - Sjogren^s syndrome [Unknown]
  - Drug intolerance [Unknown]
  - Blood count abnormal [Unknown]
  - Metastases to liver [Unknown]
  - Cataract operation [Unknown]
  - Rheumatoid arthritis [Unknown]
  - Musculoskeletal discomfort [Unknown]
  - Fall [Unknown]
  - Portal vein thrombosis [Unknown]
  - Wound [Recovered/Resolved]
  - Rash [Unknown]
  - Adenocarcinoma pancreas [Fatal]
  - Pancreaticoduodenectomy [Unknown]
  - Hip fracture [Unknown]
  - Mesenteric neoplasm [Unknown]

NARRATIVE: CASE EVENT DATE: 2009
